FAERS Safety Report 8264024-9 (Version None)
Quarter: 2012Q2

REPORT INFORMATION
  Report Type: 
  Country: None (occurrence: None)
  Receive Date: 20120406
  Receipt Date: 20120330
  Transmission Date: 20120825
  Serious: No
  Sender: FDA-Public Use
  Company Number: US-BIOGENIDEC-2012BI009470

PATIENT
  Age: 39 Year
  Sex: Female

DRUGS (3)
  1. AVONEX [Concomitant]
     Route: 030
     Dates: start: 19991101
  2. TYSABRI [Suspect]
     Indication: PRODUCT USED FOR UNKNOWN INDICATION
     Route: 042
     Dates: start: 20110805
  3. AVONEX [Concomitant]
     Route: 030
     Dates: start: 20030201

REACTIONS (3)
  - MALAISE [None]
  - BRONCHITIS [None]
  - CHEST DISCOMFORT [None]
